FAERS Safety Report 24026847 (Version 1)
Quarter: 2024Q2

REPORT INFORMATION
  Report Type: Spontaneous
  Country: FR (occurrence: FR)
  Receive Date: 20240628
  Receipt Date: 20240628
  Transmission Date: 20240715
  Serious: No
  Sender: FDA-Public Use
  Company Number: None

PATIENT
  Age: 60 Year
  Sex: Female
  Weight: 67.0 kg

DRUGS (4)
  1. ALECENSA [Suspect]
     Active Substance: ALECTINIB HYDROCHLORIDE
     Indication: Lung adenocarcinoma stage IV
     Dosage: 600MG MORNING AND EVENING
     Route: 065
     Dates: start: 20190119
  2. LEVOTHYROXINE [Concomitant]
     Active Substance: LEVOTHYROXINE\LEVOTHYROXINE SODIUM
     Indication: Thyroiditis
     Dosage: 125 MICROGRAMS, SCORED TABLET
     Route: 065
     Dates: start: 19950101
  3. ELIQUIS [Concomitant]
     Active Substance: APIXABAN
     Indication: Phlebitis
     Dosage: 2 TABLETS OF 2.5MG PER DAY
     Dates: start: 20220101
  4. ATORVASTATIN [Concomitant]
     Active Substance: ATORVASTATIN
     Indication: Hypercholesterolaemia
     Dosage: 1 TABLET PER DAY
     Dates: start: 2022

REACTIONS (6)
  - Hypoaesthesia [Not Recovered/Not Resolved]
  - Hypercholesterolaemia [Recovered/Resolved]
  - Pain [Not Recovered/Not Resolved]
  - Fatigue [Not Recovered/Not Resolved]
  - Oedema peripheral [Not Recovered/Not Resolved]
  - Constipation [Recovered/Resolved]

NARRATIVE: CASE EVENT DATE: 20190119
